FAERS Safety Report 7558818-2 (Version None)
Quarter: 2011Q2

REPORT INFORMATION
  Report Type: 
  Country: None (occurrence: None)
  Receive Date: 20110621
  Receipt Date: 20110607
  Transmission Date: 20111010
  Serious: Yes (Life-Threatening, Hospitalization, Other)
  Sender: FDA-Public Use
  Company Number: US-ROCHE-782849

PATIENT
  Age: 67 Year
  Sex: Female

DRUGS (8)
  1. BEVACIZUMAB [Suspect]
     Route: 042
     Dates: start: 20100817
  2. CYCLOPHOSPHAMIDE [Suspect]
     Indication: BREAST CANCER
     Route: 065
     Dates: start: 20100324, end: 20100728
  3. BEVACIZUMAB [Suspect]
     Indication: BREAST CANCER
     Dosage: OVER 30- 90 MIN ON DAY 1 OF WEEK 1, 3,5,7,9,11,13,15,17,
     Route: 042
     Dates: start: 20100324, end: 20100728
  4. CYCLOPHOSPHAMIDE [Suspect]
     Route: 065
     Dates: start: 20100817
  5. DOXORUBICIN HCL [Suspect]
     Route: 065
     Dates: start: 20100817
  6. PACLITAXEL [Suspect]
     Dosage: OVER 1 HR ON DAY 1 OF WKS 1-12
     Route: 065
     Dates: start: 20100817
  7. DOXORUBICIN HCL [Suspect]
     Indication: BREAST CANCER
     Route: 065
     Dates: start: 20100324, end: 20100728
  8. PACLITAXEL [Suspect]
     Indication: BREAST CANCER
     Dosage: OVER 1 HR ON DAY 1 OF WKS 1-12
     Route: 065
     Dates: start: 20100324, end: 20100728

REACTIONS (4)
  - DEVICE RELATED INFECTION [None]
  - WHITE BLOOD CELL COUNT DECREASED [None]
  - ANAEMIA [None]
  - PLATELET COUNT DECREASED [None]
